FAERS Safety Report 8124695-4 (Version None)
Quarter: 2012Q1

REPORT INFORMATION
  Report Type: 
  Country: None (occurrence: None)
  Receive Date: 20120209
  Receipt Date: 20120205
  Transmission Date: 20120608
  Serious: No
  Sender: FDA-Public Use
  Company Number: US-BAYER-2012-012952

PATIENT

DRUGS (3)
  1. FLEXERIL [Concomitant]
  2. ALEVE (CAPLET) [Suspect]
     Route: 048
  3. STRONTIUM CHLORIDE [Concomitant]

REACTIONS (2)
  - ABDOMINAL DISCOMFORT [None]
  - DYSPEPSIA [None]
